FAERS Safety Report 23998398 (Version 1)
Quarter: 2024Q2

REPORT INFORMATION
  Report Type: Spontaneous
  Country: US (occurrence: US)
  Receive Date: 20240621
  Receipt Date: 20240621
  Transmission Date: 20240716
  Serious: Yes (Death)
  Sender: FDA-Public Use
  Company Number: US-BMS-IMIDS-REMS_SI-11328140

PATIENT
  Sex: Male

DRUGS (1)
  1. LENALIDOMIDE [Suspect]
     Active Substance: LENALIDOMIDE
     Indication: Product used for unknown indication
     Dosage: 2.5 MG?DISPENSED DATE: 31-MAR-23, 05-MAY-23, 09-JUN-23, 24-AUG-23
     Dates: start: 2023

REACTIONS (2)
  - Death [Fatal]
  - Off label use [Unknown]
